FAERS Safety Report 4617619-5 (Version None)
Quarter: 2005Q1

REPORT INFORMATION
  Report Type: 
  Country: None (occurrence: None)
  Receive Date: 20050322
  Receipt Date: 20050310
  Transmission Date: 20050727
  Serious: Yes (Other)
  Sender: FDA-Public Use
  Company Number: S05-USA-01390-01

PATIENT
  Age: 51 Year
  Sex: Female

DRUGS (6)
  1. LEXAPRO [Suspect]
     Indication: DEPRESSION
     Dosage: 15 MG QD PO
     Route: 048
     Dates: start: 20040101, end: 20050306
  2. LEXAPRO [Suspect]
     Indication: OBSESSIVE-COMPULSIVE DISORDER
     Dosage: 15 MG QD PO
     Route: 048
     Dates: start: 20040101, end: 20050306
  3. LEXAPRO [Suspect]
     Indication: DEPRESSION
     Dosage: 10 MG QD PO
     Route: 048
     Dates: start: 20050307
  4. LEXAPRO [Suspect]
     Indication: OBSESSIVE-COMPULSIVE DISORDER
     Dosage: 10 MG QD PO
     Route: 048
     Dates: start: 20050307
  5. VITAMINS NOS [Concomitant]
  6. REMERON [Concomitant]

REACTIONS (3)
  - DRY MOUTH [None]
  - ENAMEL ANOMALY [None]
  - GINGIVAL DISORDER [None]
